FAERS Safety Report 20150961 (Version 1)
Quarter: 2021Q4

REPORT INFORMATION
  Report Type: Spontaneous
  Country: DE (occurrence: DE)
  Receive Date: 20211206
  Receipt Date: 20211206
  Transmission Date: 20220303
  Serious: Yes (Life-Threatening, Other)
  Sender: FDA-Public Use
  Company Number: DE-ASPEN-GLO2021DE008420

PATIENT
  Age: 30 Year
  Sex: Male
  Weight: 117 kg

DRUGS (11)
  1. ARIXTRA [Suspect]
     Active Substance: FONDAPARINUX SODIUM
     Indication: Thrombosis prophylaxis
     Dosage: UNK (ENIMAL TAGLICH)
     Route: 058
     Dates: start: 20210505, end: 20210625
  2. VICTOZA [Concomitant]
     Active Substance: LIRAGLUTIDE
     Indication: Product used for unknown indication
     Dosage: UNK
     Route: 065
     Dates: start: 20210505, end: 20210625
  3. NOVAMINSULFON CT [Concomitant]
     Indication: Product used for unknown indication
     Dosage: 500 MILLIGRAM (500 MG)
     Route: 065
     Dates: start: 20210505, end: 20210625
  4. PANTOPRAZOLE [Concomitant]
     Active Substance: PANTOPRAZOLE
     Indication: Product used for unknown indication
     Dosage: 40 MILLIGRAM (40 MG)
     Route: 065
     Dates: start: 20210505, end: 20210625
  5. MEGALAC ALMASILAT [Concomitant]
     Indication: Product used for unknown indication
     Dosage: UNK
     Route: 048
     Dates: start: 20210505, end: 20210625
  6. OXYCODONE [Concomitant]
     Active Substance: OXYCODONE
     Indication: Product used for unknown indication
     Dosage: 20 MILLIGRAM (20 MG)
     Route: 065
     Dates: start: 20210505, end: 20210625
  7. LIORESAL [Concomitant]
     Active Substance: BACLOFEN
     Indication: Product used for unknown indication
     Dosage: 10 MILLIGRAM (10 MG)
     Route: 065
     Dates: start: 20210505, end: 20210625
  8. ZOPICLONE [Concomitant]
     Active Substance: ZOPICLONE
     Indication: Product used for unknown indication
     Dosage: 7.5 MILLIGRAM (7.5 MG)
     Route: 065
     Dates: start: 20210505, end: 20210625
  9. CHOLECALCIFEROL [Concomitant]
     Active Substance: CHOLECALCIFEROL
     Indication: Product used for unknown indication
     Dosage: 20000 INTERNATIONAL UNIT (20000 IU)
     Route: 065
     Dates: start: 20210505, end: 20210625
  10. MOVICOL                            /01749801/ [Concomitant]
     Indication: Product used for unknown indication
     Dosage: UNK
     Route: 065
     Dates: start: 202105, end: 20210625
  11. IBUFLAM PLUS [Concomitant]
     Indication: Product used for unknown indication
     Dosage: 600 MILLIGRAM (600 MG)
     Route: 065
     Dates: start: 20210505, end: 20210625

REACTIONS (1)
  - Deep vein thrombosis [Recovering/Resolving]

NARRATIVE: CASE EVENT DATE: 20210621
